FAERS Safety Report 11823083 (Version 1)
Quarter: 2015Q4

REPORT INFORMATION
  Report Type: Spontaneous
  Country: FI (occurrence: FI)
  Receive Date: 20151210
  Receipt Date: 20151210
  Transmission Date: 20160305
  Serious: Yes (Other)
  Sender: FDA-Public Use
  Company Number: PHHY2015FI159876

PATIENT
  Age: 35 Year
  Sex: Female

DRUGS (3)
  1. ESOMEPRAZOL RATIOPHARM [Concomitant]
     Indication: PRODUCT USED FOR UNKNOWN INDICATION
     Route: 048
     Dates: start: 20141216
  2. DESOGESTREL SANDOZ [Suspect]
     Active Substance: DESOGESTREL
     Indication: CONTRACEPTION
     Dosage: 75 UG, QD
     Route: 048
     Dates: start: 20151016, end: 20151020
  3. XANOR [Concomitant]
     Active Substance: ALPRAZOLAM
     Indication: PRODUCT USED FOR UNKNOWN INDICATION
     Route: 048
     Dates: start: 20150603

REACTIONS (2)
  - Epilepsy [Recovered/Resolved]
  - Candida infection [Recovered/Resolved]

NARRATIVE: CASE EVENT DATE: 20151020
